FAERS Safety Report 8286104 (Version 2)
Quarter: 2013Q3

REPORT INFORMATION
  Report Type: Report from Study
  Country: US (occurrence: US)
  Receive Date: 20111213
  Receipt Date: 20130704
  Transmission Date: 20140515
  Serious: Yes (Other)
  Sender: FDA-Public Use
  Company Number: US-ELI_LILLY_AND_COMPANY-US201112000874

PATIENT
  Sex: Male

DRUGS (3)
  1. SOMATROPIN [Suspect]
     Indication: HYPOTHALAMO-PITUITARY DISORDER
     Dosage: 0.1 U, QD
     Dates: start: 2009, end: 201110
  2. ALLERGY MEDICATION [Concomitant]
  3. TESTOSTERONE [Concomitant]

REACTIONS (2)
  - Prostate cancer [Recovering/Resolving]
  - Dysuria [Unknown]
